FAERS Safety Report 20454313 (Version 2)
Quarter: 2022Q3

REPORT INFORMATION
  Report Type: Report from Study
  Country: CA (occurrence: CA)
  Receive Date: 20220210
  Receipt Date: 20220809
  Transmission Date: 20221027
  Serious: Yes (Other)
  Sender: FDA-Public Use
  Company Number: CA-HLS-202200138

PATIENT
  Age: 33 Year
  Sex: Female

DRUGS (5)
  1. CLOZARIL [Suspect]
     Active Substance: CLOZAPINE
     Indication: Schizoaffective disorder
     Dosage: UNKNOWN
     Route: 048
     Dates: start: 20191126, end: 20220207
  2. CLOZARIL [Suspect]
     Active Substance: CLOZAPINE
     Indication: Schizoaffective disorder
     Dosage: 13,14-JAN-2022 TO 15-JAN-2022, 25MG DAILY TO 50MG DAILY
     Route: 048
     Dates: end: 20220115
  3. SERTRALINE [Concomitant]
     Active Substance: SERTRALINE HYDROCHLORIDE
     Indication: Depression
     Dosage: TO 50 MG 15-JAN-2022.
     Route: 048
     Dates: start: 20220112, end: 20220115
  4. ATIVAN [Concomitant]
     Active Substance: LORAZEPAM
     Indication: Product used for unknown indication
     Dosage: 1 MG AT BEDTIME AND 1 MG TWICE DAILY AS NEEDED
     Route: 048
     Dates: start: 20220112
  5. LITHIUM [Concomitant]
     Active Substance: LITHIUM
     Indication: Depression
     Dosage: 300 MG ON 12,13,14 -JAN-2022 AND 600 MG ON 16-JNA-2022.
     Route: 048

REACTIONS (2)
  - Neutropenia [Recovered/Resolved]
  - Suicide attempt [Recovered/Resolved]

NARRATIVE: CASE EVENT DATE: 20220115
